FAERS Safety Report 6157210-5 (Version None)
Quarter: 2009Q2

REPORT INFORMATION
  Report Type: 
  Country: None (occurrence: None)
  Receive Date: 20090416
  Receipt Date: 20090409
  Transmission Date: 20091009
  Serious: Yes (Hospitalization, Other)
  Sender: FDA-Public Use
  Company Number: US-MERCK-0807USA03749

PATIENT
  Age: 47 Year
  Sex: Female

DRUGS (7)
  1. FOSAMAX [Suspect]
     Indication: OSTEOPOROSIS PROPHYLAXIS
     Route: 048
     Dates: start: 20031201, end: 20051001
  2. FOSAMAX [Suspect]
     Route: 048
     Dates: start: 20050601
  3. FOSAMAX [Suspect]
     Indication: OSTEOPOROSIS
     Route: 048
     Dates: start: 20031201, end: 20051001
  4. FOSAMAX [Suspect]
     Route: 048
     Dates: start: 20050601
  5. ZOMETA [Suspect]
     Indication: OSTEOPOROSIS PROPHYLAXIS
     Route: 042
     Dates: start: 19960101, end: 20050101
  6. ZOMETA [Suspect]
     Indication: OSTEOPOROSIS
     Route: 042
     Dates: start: 19960101, end: 20050101
  7. HYDROCODONE BITARTRATE [Concomitant]
     Indication: PAIN
     Route: 065
     Dates: start: 19960101

REACTIONS (20)
  - ANXIETY [None]
  - BACK PAIN [None]
  - BREAST CANCER [None]
  - BREAST DISORDER [None]
  - DEPRESSION [None]
  - DRUG HYPERSENSITIVITY [None]
  - DRUG INEFFECTIVE [None]
  - FOOD ALLERGY [None]
  - HYPOAESTHESIA ORAL [None]
  - IMPAIRED HEALING [None]
  - INSOMNIA [None]
  - INTENTIONAL DRUG MISUSE [None]
  - MALAISE [None]
  - METASTASES TO SPINE [None]
  - METASTATIC NEOPLASM [None]
  - OSTEONECROSIS [None]
  - OVARIAN DISORDER [None]
  - PARAESTHESIA [None]
  - POSTOPERATIVE WOUND COMPLICATION [None]
  - TOOTH FRACTURE [None]
